FAERS Safety Report 11415987 (Version 1)
Quarter: 2015Q3

REPORT INFORMATION
  Report Type: Spontaneous
  Country: GB (occurrence: GB)
  Receive Date: 20150825
  Receipt Date: 20150825
  Transmission Date: 20151125
  Serious: Yes (Other)
  Sender: FDA-Public Use
  Company Number: GB-TEVA-588502ISR

PATIENT
  Age: 96 Year
  Sex: Female
  Weight: 61.3 kg

DRUGS (4)
  1. WARFARIN [Suspect]
     Active Substance: WARFARIN
     Indication: ATRIAL FIBRILLATION
     Route: 065
  2. BENDROFLUMETHIAZIDE [Concomitant]
     Active Substance: BENDROFLUMETHIAZIDE
     Dosage: 2.5 MILLIGRAM DAILY; FORM OF ADMIN: CONTROLLED RELEASE, SUSTAINED-RELEASED
     Route: 065
  3. NIFEDIPINE. [Concomitant]
     Active Substance: NIFEDIPINE
     Dosage: 30 MILLIGRAM DAILY; FORM OF ADMIN: CONTROLLED RELEASE, SUSTAINED-RELEASED
     Route: 065
  4. LISINOPRIL. [Concomitant]
     Active Substance: LISINOPRIL
     Dosage: 2.5 MILLIGRAM DAILY;
     Route: 065

REACTIONS (2)
  - Haemorrhagic hepatic cyst [Recovered/Resolved]
  - Right ventricular failure [Recovered/Resolved]
